FAERS Safety Report 24389047 (Version 5)
Quarter: 2025Q1

REPORT INFORMATION
  Report Type: Report from Study
  Country: US (occurrence: US)
  Receive Date: 20241002
  Receipt Date: 20250127
  Transmission Date: 20250409
  Serious: Yes (Death, Other)
  Sender: AMGEN
  Company Number: US-AMGEN-USASL2024191298

PATIENT
  Age: 68 Year
  Sex: Male
  Weight: 106.8 kg

DRUGS (1)
  1. NEULASTA [Suspect]
     Active Substance: PEGFILGRASTIM
     Indication: Neutropenia
     Route: 065
     Dates: end: 20231010

REACTIONS (2)
  - Prostate cancer metastatic [Fatal]
  - Device malfunction [Unknown]

NARRATIVE: CASE EVENT DATE: 20230829
